FAERS Safety Report 13791073 (Version 1)
Quarter: 2017Q3

REPORT INFORMATION
  Report Type: Spontaneous
  Country: US (occurrence: US)
  Receive Date: 20170725
  Receipt Date: 20170725
  Transmission Date: 20171127
  Serious: Yes (Other)
  Sender: FDA-Public Use
  Company Number: US-ASTRAZENECA-2017SE73939

PATIENT
  Sex: Female

DRUGS (6)
  1. TOFACITINIB [Concomitant]
     Active Substance: TOFACITINIB
     Dosage: DOSE AND FREQUENCY UNKNOWN
     Route: 065
  2. BUSPIRONE [Concomitant]
     Active Substance: BUSPIRONE HYDROCHLORIDE
  3. CARDIZEM [Concomitant]
     Active Substance: DILTIAZEM HYDROCHLORIDE
     Indication: CARDIAC DISORDER
  4. QUETIAPINE FUMARATE. [Suspect]
     Active Substance: QUETIAPINE FUMARATE
     Indication: SLEEP DISORDER
     Dosage: DOSE AND FREQUENCY UNKNOWN
     Route: 048
  5. TOFACITINIB [Concomitant]
     Active Substance: TOFACITINIB
     Dosage: DOSE AND FREQUENCY UNKNOWN
     Route: 065
     Dates: end: 201705
  6. OXYBUTYNIN [Concomitant]
     Active Substance: OXYBUTYNIN
     Dosage: DOSE AND FREQUENCY UNKNOWN
     Route: 065

REACTIONS (8)
  - Bipolar disorder [Unknown]
  - Nasopharyngitis [Unknown]
  - Dizziness [Unknown]
  - Gait disturbance [Unknown]
  - Throat irritation [Unknown]
  - Osteoarthritis [Unknown]
  - Visual field defect [Unknown]
  - Fall [Unknown]

NARRATIVE: CASE EVENT DATE: 201705
